FAERS Safety Report 7609396-0 (Version None)
Quarter: 2011Q3

REPORT INFORMATION
  Report Type: 
  Country: None (occurrence: None)
  Receive Date: 20110714
  Receipt Date: 20110708
  Transmission Date: 20111222
  Serious: Yes (Death, Hospitalization, Other)
  Sender: FDA-Public Use
  Company Number: TH-PFIZER INC-2011077662

PATIENT
  Age: 76 Year
  Sex: Male

DRUGS (3)
  1. ANTI-DIABETICS [Concomitant]
     Indication: DIABETES MELLITUS
  2. ANTIHYPERTENSIVES [Concomitant]
     Indication: HYPERTENSION
  3. SUTENT [Suspect]
     Indication: METASTATIC RENAL CELL CARCINOMA
     Dosage: 50 MG, 1X/DAY
     Route: 048
     Dates: start: 20110201, end: 20110322

REACTIONS (5)
  - SEPSIS [None]
  - GASTROINTESTINAL HAEMORRHAGE [None]
  - BLOOD PRESSURE DECREASED [None]
  - DISEASE PROGRESSION [None]
  - METASTATIC RENAL CELL CARCINOMA [None]
